FAERS Safety Report 10572833 (Version 1)
Quarter: 2014Q4

REPORT INFORMATION
  Report Type: Report from Study
  Country: US (occurrence: US)
  Receive Date: 20141110
  Receipt Date: 20141110
  Transmission Date: 20150529
  Serious: No
  Sender: FDA-Public Use
  Company Number: US-AMGEN INC.-USASL2014085544

PATIENT
  Age: 59 Year
  Sex: Male
  Weight: 97.51 kg

DRUGS (6)
  1. MOISTUREL [Concomitant]
     Dosage: UNK
  2. LIALDA [Concomitant]
     Active Substance: MESALAMINE
     Dosage: 1.2 G, UNK
  3. TACLONEX [Concomitant]
     Active Substance: BETAMETHASONE DIPROPIONATE\CALCIPOTRIENE\CALCIPOTRIENE HYDRATE
     Dosage: UNK
  4. ENBREL [Suspect]
     Active Substance: ETANERCEPT
     Indication: PRODUCT USED FOR UNKNOWN INDICATION
     Dosage: 50 MG, QWK
     Route: 058
  5. TRIAMCINOLON                       /00031901/ [Concomitant]
     Dosage: 0.1%, UNK
  6. CLARITIN                           /00984601/ [Concomitant]
     Dosage: 10 MG, UNK

REACTIONS (2)
  - Psoriasis [Recovered/Resolved]
  - Bronchitis [Unknown]

NARRATIVE: CASE EVENT DATE: 2014
